FAERS Safety Report 15682650 (Version 1)
Quarter: 2018Q4

REPORT INFORMATION
  Report Type: Spontaneous
  Country: US (occurrence: US)
  Receive Date: 20181203
  Receipt Date: 20181203
  Transmission Date: 20190205
  Serious: Yes (Death)
  Sender: FDA-Public Use
  Company Number: US-VIFOR (INTERNATIONAL) INC.-VIT-2018-11864

PATIENT
  Age: 54 Year
  Sex: Male

DRUGS (11)
  1. ASPIR 81 [Concomitant]
  2. ATENOLOL. [Concomitant]
     Active Substance: ATENOLOL
  3. COLCHICINE. [Concomitant]
     Active Substance: COLCHICINE
  4. ALLOPURINOL. [Concomitant]
     Active Substance: ALLOPURINOL
  5. GLIPIZIDE. [Concomitant]
     Active Substance: GLIPIZIDE
  6. VELTASSA [Suspect]
     Active Substance: PATIROMER
     Indication: HYPERKALAEMIA
     Route: 048
     Dates: start: 20180511
  7. BACTROBAN [Concomitant]
     Active Substance: MUPIROCIN\MUPIROCIN CALCIUM
     Route: 045
  8. FLONASE [Concomitant]
     Active Substance: FLUTICASONE PROPIONATE
  9. HECTOROL [Concomitant]
     Active Substance: DOXERCALCIFEROL
  10. ARANESP (ALBUMIN FREE) [Concomitant]
  11. FOLIC ACID. [Concomitant]
     Active Substance: FOLIC ACID

REACTIONS (1)
  - Death [Fatal]

NARRATIVE: CASE EVENT DATE: 201810
